FAERS Safety Report 20684718 (Version 1)
Quarter: 2022Q2

REPORT INFORMATION
  Report Type: Spontaneous
  Country: US (occurrence: None)
  Receive Date: 20220406
  Receipt Date: 20220406
  Transmission Date: 20220721
  Serious: Yes (Death, Life-Threatening, Hospitalization, Disabling)
  Sender: FDA-Public Use
  Company Number: None

PATIENT
  Age: 61 Year
  Sex: Female
  Weight: 67.5 kg

DRUGS (2)
  1. CLONAZEPAM [Suspect]
     Active Substance: CLONAZEPAM
     Indication: Withdrawal syndrome
     Dosage: OTHER QUANTITY : 1 TABLET(S);?FREQUENCY : TWICE A DAY;?
     Route: 048
     Dates: start: 20020409, end: 20220311
  2. CLONAZEPAM [Suspect]
     Active Substance: CLONAZEPAM
     Indication: Akathisia

REACTIONS (21)
  - Completed suicide [None]
  - Withdrawal syndrome [None]
  - Restlessness [None]
  - Suicidal ideation [None]
  - Anxiety [None]
  - Akathisia [None]
  - Drug tolerance [None]
  - Fear [None]
  - Tremor [None]
  - Intrusive thoughts [None]
  - Feeling of despair [None]
  - Nightmare [None]
  - Terminal insomnia [None]
  - Chills [None]
  - Influenza like illness [None]
  - Muscle twitching [None]
  - Muscle rigidity [None]
  - Muscle spasms [None]
  - Insomnia [None]
  - Nervous system injury [None]
  - Impaired quality of life [None]

NARRATIVE: CASE EVENT DATE: 20140409
